FAERS Safety Report 16069784 (Version 7)
Quarter: 2020Q3

REPORT INFORMATION
  Report Type: Report from Study
  Country: US (occurrence: US)
  Receive Date: 20190314
  Receipt Date: 20200707
  Transmission Date: 20201102
  Serious: Yes (Death, Other)
  Sender: FDA-Public Use
  Company Number: PHHY2018US201276

PATIENT
  Age: 12 Year
  Sex: Female

DRUGS (3)
  1. KYMRIAH [Suspect]
     Active Substance: TISAGENLECLEUCEL
     Indication: B-CELL TYPE ACUTE LEUKAEMIA
     Dosage: ONCE/SINGLE
     Route: 041
     Dates: start: 2018
  2. CYCLOPHOSPHAMIDE. [Concomitant]
     Active Substance: CYCLOPHOSPHAMIDE
     Indication: CHEMOTHERAPY
     Dosage: UNK
     Route: 065
  3. FLUDARABINE [Concomitant]
     Active Substance: FLUDARABINE PHOSPHATE
     Indication: CHEMOTHERAPY
     Dosage: UNK
     Route: 065

REACTIONS (19)
  - Cardiac failure [Unknown]
  - Malignant neoplasm progression [Unknown]
  - Platelet count decreased [Unknown]
  - Neutropenia [Unknown]
  - B-cell type acute leukaemia [Unknown]
  - Treatment failure [Unknown]
  - Haematocrit decreased [Recovered/Resolved]
  - Bacterial infection [Unknown]
  - Neutrophil count decreased [Recovered/Resolved]
  - Neutrophil count decreased [Unknown]
  - Lymphocyte count decreased [Recovered/Resolved]
  - Thrombocytopenia [Unknown]
  - Multiple organ dysfunction syndrome [Unknown]
  - Cytopenia [Unknown]
  - Haemoglobin decreased [Recovered/Resolved]
  - Acute respiratory distress syndrome [Fatal]
  - White blood cell count decreased [Unknown]
  - Staphylococcal infection [Unknown]
  - Trichosporon infection [Unknown]
